FAERS Safety Report 19180014 (Version 2)
Quarter: 2021Q2

REPORT INFORMATION
  Report Type: Spontaneous
  Country: US (occurrence: US)
  Receive Date: 20210426
  Receipt Date: 20210610
  Transmission Date: 20210717
  Serious: No
  Sender: FDA-Public Use
  Company Number: US-PFIZER INC-2021398003

PATIENT
  Age: 6 Year
  Sex: Male

DRUGS (2)
  1. GENOTROPIN [Suspect]
     Active Substance: SOMATROPIN
     Dosage: 0.6 (UNSPECIFIED UNIT) FROM FRIDAY?SUNDAY
  2. GENOTROPIN [Suspect]
     Active Substance: SOMATROPIN
     Indication: GROWTH DISORDER
     Dosage: 0.7 (UNSPECIFIED UNIT) FROM MONDAY? THURSDAY

REACTIONS (2)
  - Drug dose omission by device [Unknown]
  - Device malfunction [Unknown]
